FAERS Safety Report 20866643 (Version 1)
Quarter: 2022Q2

REPORT INFORMATION
  Report Type: Spontaneous
  Country: SG (occurrence: None)
  Receive Date: 20220524
  Receipt Date: 20220524
  Transmission Date: 20220721
  Serious: Yes (Other)
  Sender: FDA-Public Use
  Company Number: SG-ROCHE-3101885

PATIENT
  Sex: Male

DRUGS (1)
  1. ENTRECTINIB [Suspect]
     Active Substance: ENTRECTINIB
     Indication: Liposarcoma
     Route: 065

REACTIONS (1)
  - Neoplasm progression [Unknown]

NARRATIVE: CASE EVENT DATE: 20220301
